FAERS Safety Report 6068484-3 (Version None)
Quarter: 2009Q1

REPORT INFORMATION
  Report Type: 
  Country: None (occurrence: None)
  Receive Date: 20090206
  Receipt Date: 20090126
  Transmission Date: 20090719
  Serious: Yes (Death)
  Sender: FDA-Public Use
  Company Number: JP-PFIZER INC-2009162479

PATIENT

DRUGS (3)
  1. LINEZOLID [Suspect]
     Indication: PNEUMONIA
     Dosage: 600 MG, 2X/DAY
     Route: 042
     Dates: start: 20081201, end: 20081214
  2. LINEZOLID [Suspect]
     Dosage: 600 MG, 2X/DAY
     Dates: start: 20081219, end: 20081226
  3. MEROPEN [Concomitant]
     Route: 042
     Dates: start: 20081216, end: 20081231

REACTIONS (1)
  - CHRONIC OBSTRUCTIVE PULMONARY DISEASE [None]
